FAERS Safety Report 10409110 (Version 1)
Quarter: 2014Q3

REPORT INFORMATION
  Report Type: Spontaneous
  Country: US (occurrence: None)
  Receive Date: 20140825
  Receipt Date: 20140825
  Transmission Date: 20150326
  Serious: Yes (Hospitalization, Disabling)
  Sender: FDA-Public Use
  Company Number: None

PATIENT
  Age: 43 Year
  Sex: Male
  Weight: 106.6 kg

DRUGS (1)
  1. NUVIGIL [Suspect]
     Active Substance: ARMODAFINIL
     Indication: CIRCADIAN RHYTHM SLEEP DISORDER
     Dosage: 1/2 TO 1 PILL ONE HOUR BEFORE, BEFORE OFF- SHIFTS, TAKEN BY MOUTH?ABOUT A YEAR AND A HALF NOW
     Route: 048

REACTIONS (21)
  - Angina pectoris [None]
  - Ill-defined disorder [None]
  - Fatigue [None]
  - Defaecation urgency [None]
  - Muscle spasms [None]
  - Cardiac stress test abnormal [None]
  - Acarodermatitis [None]
  - Migraine [None]
  - Pain in extremity [None]
  - Diarrhoea [None]
  - Hyperhidrosis [None]
  - Blood magnesium decreased [None]
  - Insomnia [None]
  - Chest pain [None]
  - Cardiac imaging procedure abnormal [None]
  - Extrasystoles [None]
  - Claustrophobia [None]
  - Cardiac function test abnormal [None]
  - Bowel movement irregularity [None]
  - Vessel puncture site bruise [None]
  - Vessel puncture site reaction [None]
